FAERS Safety Report 4793866-7 (Version None)
Quarter: 2005Q4

REPORT INFORMATION
  Report Type: 
  Country: None (occurrence: None)
  Receive Date: 20051006
  Receipt Date: 20050926
  Transmission Date: 20060501
  Serious: Yes (Death)
  Sender: FDA-Public Use
  Company Number: US-2005-020095

PATIENT
  Age: 49 Year
  Sex: Female

DRUGS (1)
  1. BETASERON (INTERFERON BETA-1B) INJECTION, 250 UG [Suspect]
     Indication: MULTIPLE SCLEROSIS
     Dosage: SUBCUTANEOUS
     Route: 058
     Dates: start: 19970101

REACTIONS (5)
  - BREAST CANCER FEMALE [None]
  - BREAST CANCER METASTATIC [None]
  - HEADACHE [None]
  - HYPOTONIA [None]
  - METASTASES TO CENTRAL NERVOUS SYSTEM [None]
